FAERS Safety Report 15814224 (Version 1)
Quarter: 2019Q1

REPORT INFORMATION
  Report Type: Report from Study
  Country: BR (occurrence: BR)
  Receive Date: 20190111
  Receipt Date: 20190111
  Transmission Date: 20190417
  Serious: Yes (Life-Threatening, Other)
  Sender: FDA-Public Use
  Company Number: PHHY2019BR003210

PATIENT
  Sex: Female

DRUGS (1)
  1. TRILEPTAL [Suspect]
     Active Substance: OXCARBAZEPINE
     Indication: PRODUCT USED FOR UNKNOWN INDICATION
     Dosage: 300 MG, UNK
     Route: 065
     Dates: start: 2009

REACTIONS (11)
  - Feeling abnormal [Unknown]
  - Nervousness [Unknown]
  - Confusional state [Unknown]
  - Irritability [Unknown]
  - Memory impairment [Unknown]
  - Malaise [Unknown]
  - Drug dependence [Unknown]
  - Urinary tract infection [Unknown]
  - Fluid intake reduced [Unknown]
  - Aggression [Unknown]
  - Fatigue [Unknown]
